FAERS Safety Report 26040332 (Version 1)
Quarter: 2025Q4

REPORT INFORMATION
  Report Type: Spontaneous
  Country: EU (occurrence: EU)
  Receive Date: 20251113
  Receipt Date: 20251113
  Transmission Date: 20260117
  Serious: Yes (Other)
  Sender: BRACCO
  Company Number: EU-BRACCO-2025NO07794

PATIENT
  Age: 56 Year
  Sex: Female

DRUGS (1)
  1. IOMERON [Suspect]
     Active Substance: IOMEPROL
     Indication: Computerised tomogram
     Dosage: 110 ML, SINGLE
     Dates: start: 20251014, end: 20251014

REACTIONS (2)
  - Syncope [Unknown]
  - Skin reaction [Unknown]
